FAERS Safety Report 11656519 (Version 2)
Quarter: 2015Q4

REPORT INFORMATION
  Report Type: Spontaneous
  Country: US (occurrence: US)
  Receive Date: 20151023
  Receipt Date: 20151027
  Transmission Date: 20160304
  Serious: No
  Sender: FDA-Public Use
  Company Number: US-BAYER-2015-448344

PATIENT
  Sex: Female

DRUGS (1)
  1. CLIMARA [Suspect]
     Active Substance: ESTRADIOL
     Dosage: UNK
     Route: 062

REACTIONS (8)
  - Drug ineffective [None]
  - Dysmenorrhoea [None]
  - Product quality issue [None]
  - Intentional product use issue [None]
  - Crying [None]
  - Depressed mood [None]
  - Hot flush [None]
  - Anxiety [None]
